FAERS Safety Report 7328319-5 (Version None)
Quarter: 2011Q1

REPORT INFORMATION
  Report Type: 
  Country: None (occurrence: None)
  Receive Date: 20110224
  Receipt Date: 20110224
  Transmission Date: 20110831
  Serious: No
  Sender: FDA-Public Use
  Company Number: None

PATIENT
  Sex: Male

DRUGS (3)
  1. METHOTREXATE [Suspect]
  2. TAXOL [Suspect]
  3. CARBOPLATIN [Suspect]

REACTIONS (14)
  - PLATELET COUNT DECREASED [None]
  - MENTAL STATUS CHANGES [None]
  - SOMNOLENCE [None]
  - CHILLS [None]
  - LETHARGY [None]
  - FLUID INTAKE REDUCED [None]
  - URINARY INCONTINENCE [None]
  - FAECAL INCONTINENCE [None]
  - DYSPNOEA [None]
  - HYPERSOMNIA [None]
  - WEIGHT DECREASED [None]
  - LABORATORY TEST ABNORMAL [None]
  - CONFUSIONAL STATE [None]
  - DECREASED APPETITE [None]
